FAERS Safety Report 6437966-4 (Version None)
Quarter: 2009Q4

REPORT INFORMATION
  Report Type: 
  Country: None (occurrence: None)
  Receive Date: 20091112
  Receipt Date: 20081103
  Transmission Date: 20100525
  Serious: No
  Sender: FDA-Public Use
  Company Number: US-ASTRAZENECA-2009UW16254

PATIENT
  Age: 29 Year
  Sex: Female

DRUGS (2)
  1. PRILOSEC OTC [Suspect]
     Indication: DYSPEPSIA
     Dosage: TWO DOSAGES
     Route: 048
     Dates: start: 20081020, end: 20081103
  2. PRILOSEC OTC [Suspect]
     Indication: GASTROOESOPHAGEAL REFLUX DISEASE
     Dosage: TWO DOSAGES
     Route: 048
     Dates: start: 20081020, end: 20081103

REACTIONS (2)
  - RASH PRURITIC [None]
  - SKIN IRRITATION [None]
